FAERS Safety Report 6067495-1 (Version None)
Quarter: 2009Q1

REPORT INFORMATION
  Report Type: 
  Country: None (occurrence: None)
  Receive Date: 20090121
  Receipt Date: 20080313
  Transmission Date: 20090719
  Serious: Yes (Hospitalization, Other)
  Sender: FDA-Public Use
  Company Number: HQWYE082726OCT04

PATIENT
  Age: 55 Year
  Sex: Female

DRUGS (5)
  1. PREMPRO [Suspect]
  2. MEDROXYPROGESTERONE [Suspect]
  3. NORETHINDRONE ACETATE [Suspect]
  4. NORLUTATE [Suspect]
  5. PREMARIN [Suspect]

REACTIONS (1)
  - BREAST CANCER [None]
